FAERS Safety Report 18313157 (Version 2)
Quarter: 2020Q4

REPORT INFORMATION
  Report Type: Spontaneous
  Country: JP (occurrence: JP)
  Receive Date: 20200925
  Receipt Date: 20201102
  Transmission Date: 20210113
  Serious: Yes (Death, Other)
  Sender: FDA-Public Use
  Company Number: JP-OTSUKA-2020_022755AA

PATIENT
  Age: 12 Year
  Sex: Female

DRUGS (2)
  1. BUSULFEX [Suspect]
     Active Substance: BUSULFAN
     Indication: CORD BLOOD TRANSPLANT THERAPY
     Dosage: 3.2 MG, QD
     Route: 042
  2. MELPHALAN. [Suspect]
     Active Substance: MELPHALAN
     Indication: CORD BLOOD TRANSPLANT THERAPY
     Dosage: UNK
     Route: 065

REACTIONS (6)
  - Incorrect product administration duration [Unknown]
  - Acute kidney injury [Fatal]
  - Renal haemorrhage [Fatal]
  - Gastrointestinal haemorrhage [Fatal]
  - Sepsis [Fatal]
  - Inappropriate schedule of product administration [Unknown]
